FAERS Safety Report 8472064-X (Version None)
Quarter: 2012Q2

REPORT INFORMATION
  Report Type: 
  Country: None (occurrence: None)
  Receive Date: 20120627
  Receipt Date: 20120619
  Transmission Date: 20120825
  Serious: Yes (Other)
  Sender: FDA-Public Use
  Company Number: US-JNJFOC-20120610819

PATIENT
  Age: 19 Year
  Sex: Female
  Weight: 56.7 kg

DRUGS (2)
  1. LOESTRIN 24 FE [Concomitant]
     Indication: CONTRACEPTION
     Route: 065
  2. NEOSPORIN ECZEMA ESSENTIALS DAILY MOISTURIZING CREAM [Suspect]
     Indication: ECZEMA
     Dosage: QUARTER SIZE AMOUNT
     Route: 061
     Dates: start: 20120613, end: 20120614

REACTIONS (1)
  - HYPERSENSITIVITY [None]
